FAERS Safety Report 5994307-4 (Version None)
Quarter: 2008Q4

REPORT INFORMATION
  Report Type: 
  Country: None (occurrence: None)
  Receive Date: 20081209
  Receipt Date: 20080827
  Transmission Date: 20090506
  Serious: No
  Sender: FDA-Public Use
  Company Number: 002#1#2008-00533

PATIENT
  Age: 52 Year
  Sex: Female
  Weight: 58.9676 kg

DRUGS (3)
  1. NEUPRO [Suspect]
     Indication: RESTLESS LEGS SYNDROME
     Dosage: 4MG/24H,1 IN 1 D,TRANSDERMAL
     Route: 062
     Dates: start: 20080305
  2. TYLENOL W/ CODEINE NO. 3 [Concomitant]
  3. SINEMET CR [Concomitant]

REACTIONS (2)
  - OFF LABEL USE [None]
  - PRODUCT QUALITY ISSUE [None]
